FAERS Safety Report 16684586 (Version 3)
Quarter: 2019Q4

REPORT INFORMATION
  Report Type: Spontaneous
  Country: CA (occurrence: CA)
  Receive Date: 20190808
  Receipt Date: 20191209
  Transmission Date: 20200122
  Serious: Yes (Death, Hospitalization)
  Sender: FDA-Public Use
  Company Number: CA-ACTELION-A-NJ2019-194015

PATIENT
  Age: 38 Year
  Sex: Female
  Weight: 73.92 kg

DRUGS (2)
  1. TADALAFIL. [Concomitant]
     Active Substance: TADALAFIL
  2. OPSUMIT [Suspect]
     Active Substance: MACITENTAN
     Indication: PULMONARY ARTERIAL HYPERTENSION
     Dosage: 10 MG, QD
     Route: 048
     Dates: start: 20190521

REACTIONS (3)
  - Lymphadenectomy [Not Recovered/Not Resolved]
  - Cervix carcinoma [Fatal]
  - Nerve compression [Not Recovered/Not Resolved]

NARRATIVE: CASE EVENT DATE: 20190728
